FAERS Safety Report 5808610-1 (Version None)
Quarter: 2008Q3

REPORT INFORMATION
  Report Type: 
  Country: None (occurrence: None)
  Receive Date: 20080714
  Receipt Date: 20080703
  Transmission Date: 20090109
  Serious: Yes (Hospitalization)
  Sender: FDA-Public Use
  Company Number: AU-ABBOTT-08P-008-0460933-00

PATIENT
  Sex: Male

DRUGS (9)
  1. LUCRIN DEPOT 22.5 MG [Suspect]
     Indication: PROSTATE CANCER
     Route: 050
     Dates: start: 20050512, end: 20050825
  2. LUCRIN DEPOT 22.5 MG [Suspect]
     Indication: PROSTATE CANCER METASTATIC
     Route: 050
     Dates: start: 20060907
  3. ZOLEDRONIC ACID [Concomitant]
     Indication: PROSTATE CANCER
     Dosage: 4.0 MG PER 100  ML
     Dates: start: 20050517, end: 20060824
  4. PERINDAPRIL [Concomitant]
     Indication: HYPERTENSION
  5. AMLODIPINE MALEATE [Concomitant]
     Indication: HYPERTENSION
  6. ACETYLSALICYLIC ACID SRT [Concomitant]
     Indication: HYPERTENSION
  7. METOPROLOL TARTRATE [Concomitant]
     Indication: HYPERTENSION
  8. AMINOGLUTETHIMIDE [Concomitant]
     Indication: DRUG USE FOR UNKNOWN INDICATION
     Dates: start: 20070514
  9. CORTISONE [Concomitant]
     Indication: DRUG USE FOR UNKNOWN INDICATION
     Dates: start: 20070514

REACTIONS (2)
  - ACUTE CORONARY SYNDROME [None]
  - ACUTE MYOCARDIAL INFARCTION [None]
